FAERS Safety Report 7610325-4 (Version None)
Quarter: 2011Q3

REPORT INFORMATION
  Report Type: 
  Country: None (occurrence: None)
  Receive Date: 20110707
  Receipt Date: 20110623
  Transmission Date: 20111222
  Serious: Yes (Hospitalization)
  Sender: FDA-Public Use
  Company Number: 2011MA008006

PATIENT
  Age: 60 Year
  Sex: Male

DRUGS (5)
  1. HYDROCHLOROTHIAZIDE [Suspect]
     Indication: PRODUCT USED FOR UNKNOWN INDICATION
     Dosage: 25 MG, QD
     Dates: start: 20090219
  2. FLUPHENAZINE [Concomitant]
  3. CISPLATIN [Suspect]
     Dosage: 100MG/M2  IV
     Route: 042
  4. DOXORUBICIN HCL [Suspect]
     Dosage: IV
     Route: 042
  5. AMITRIPTYLINE HCL [Concomitant]

REACTIONS (6)
  - INAPPROPRIATE ANTIDIURETIC HORMONE SECRETION [None]
  - COMA [None]
  - AUTOMATISM [None]
  - DISORIENTATION [None]
  - RESPIRATORY ALKALOSIS [None]
  - HYPERVENTILATION [None]
